FAERS Safety Report 14014577 (Version 1)
Quarter: 2017Q3

REPORT INFORMATION
  Report Type: Spontaneous
  Country: JP (occurrence: JP)
  Receive Date: 20170927
  Receipt Date: 20170927
  Transmission Date: 20171128
  Serious: Yes (Other)
  Sender: FDA-Public Use
  Company Number: JP-ACS-000784

PATIENT
  Age: 72 Year
  Sex: Female

DRUGS (3)
  1. AMPICILLIN/SULBACTAM [Suspect]
     Active Substance: AMPICILLIN SODIUM\SULBACTAM SODIUM
     Indication: PERITONITIS
     Route: 042
  2. MEROPENEM. [Concomitant]
     Active Substance: MEROPENEM
     Indication: PERITONITIS
     Route: 042
  3. PIPERACILLIN/TAZOBACTAM [Suspect]
     Active Substance: PIPERACILLIN SODIUM\TAZOBACTAM SODIUM
     Indication: PERITONITIS
     Route: 042

REACTIONS (1)
  - Linear IgA disease [Recovered/Resolved]
